FAERS Safety Report 11472955 (Version 1)
Quarter: 2015Q3

REPORT INFORMATION
  Report Type: Spontaneous
  Country: US (occurrence: US)
  Receive Date: 20150908
  Receipt Date: 20150908
  Transmission Date: 20151125
  Serious: Yes (Hospitalization, Other)
  Sender: FDA-Public Use
  Company Number: US-JAZZ-2013-US-003705

PATIENT
  Age: 43 Year
  Sex: Female

DRUGS (4)
  1. PROVIGIL [Concomitant]
     Active Substance: MODAFINIL
     Indication: NARCOLEPSY
  2. WELLBUTRIN [Concomitant]
     Active Substance: BUPROPION HYDROCHLORIDE
     Indication: PRODUCT USED FOR UNKNOWN INDICATION
  3. LAMICTAL [Concomitant]
     Active Substance: LAMOTRIGINE
     Indication: PRODUCT USED FOR UNKNOWN INDICATION
  4. XYREM [Suspect]
     Active Substance: SODIUM OXYBATE
     Indication: PRODUCT USED FOR UNKNOWN INDICATION
     Dosage: 3 G, BID
     Route: 048
     Dates: start: 20130729

REACTIONS (2)
  - Depression [Recovered/Resolved]
  - Overdose [Recovered/Resolved]

NARRATIVE: CASE EVENT DATE: 20130917
